FAERS Safety Report 7273776-6 (Version None)
Quarter: 2011Q1

REPORT INFORMATION
  Report Type: 
  Country: None (occurrence: None)
  Receive Date: 20110203
  Receipt Date: 20110127
  Transmission Date: 20110831
  Serious: Yes (Other)
  Sender: FDA-Public Use
  Company Number: BR-PFIZER INC-2010181618

PATIENT
  Age: 54 Year
  Sex: Female
  Weight: 82 kg

DRUGS (12)
  1. NEURONTIN [Suspect]
     Indication: THROMBOSIS
     Dosage: UNK
     Route: 048
     Dates: start: 20070101, end: 20110111
  2. CIPROFLOXACIN HYDROCHLORIDE [Concomitant]
     Dosage: UNK
  3. LISADOR [Concomitant]
     Indication: PAIN
     Dosage: UNK, 3 TABLETS PER DAY
  4. LYRICA [Suspect]
     Indication: THROMBOSIS
     Dosage: UNK
     Route: 048
     Dates: start: 20060101, end: 20110115
  5. LYRICA [Suspect]
     Indication: COAGULOPATHY
  6. MAREVAN ^BRITISH DRUG HOUSES^ [Concomitant]
     Dosage: UNK
  7. AMLODIPINE BESILATE [Concomitant]
     Indication: HYPERTENSION
     Dosage: 5 MG, 1X/DAY
     Dates: start: 20070101
  8. AAS [Concomitant]
     Indication: CARDIOVASCULAR DISORDER
     Dosage: 100 MG, 2X/DAY
     Dates: start: 20000101
  9. ATENOLOL [Concomitant]
     Indication: HYPERTENSION
     Dosage: 100 MG, 1X/DAY
     Dates: start: 20000101
  10. ATENOLOL [Concomitant]
     Indication: ARRHYTHMIA
  11. CILOSTAZOL [Concomitant]
     Indication: CARDIOVASCULAR DISORDER
     Dosage: 50 MG, 1X/DAY
     Dates: start: 20070101
  12. TEGRETOL [Concomitant]
     Dosage: UNK

REACTIONS (7)
  - HYPERHIDROSIS [None]
  - NAUSEA [None]
  - ARRHYTHMIA [None]
  - HYPERTENSION [None]
  - CARDIAC FAILURE [None]
  - HEART RATE INCREASED [None]
  - TINNITUS [None]
